FAERS Safety Report 18820064 (Version 1)
Quarter: 2021Q1

REPORT INFORMATION
  Report Type: Spontaneous
  Country: GR (occurrence: GR)
  Receive Date: 20210202
  Receipt Date: 20210202
  Transmission Date: 20210419
  Serious: Yes (Other)
  Sender: FDA-Public Use
  Company Number: GR-BAUSCH-BL-2021-003260

PATIENT
  Sex: Female

DRUGS (3)
  1. RIFACOL [Suspect]
     Active Substance: RIFAXIMIN
     Indication: GASTROINTESTINAL INFLAMMATION
     Dosage: 3 TIMES A DAY THREE QUARTERS (3/4) OF A TABLET AFTER GRINDING IT TO POWDER, FOR 10 DAYS
     Route: 048
     Dates: start: 201806, end: 2018
  2. RIFACOL [Suspect]
     Active Substance: RIFAXIMIN
     Dosage: 3 TIMES A DAY THREE QUARTERS (3/4) OF A TABLET AFTER GRINDING IT TO POWDER, FOR 10 DAYS
     Route: 048
     Dates: start: 201810, end: 201902
  3. PROBIOTICS [Concomitant]
     Active Substance: PROBIOTICS NOS
     Indication: PRODUCT USED FOR UNKNOWN INDICATION

REACTIONS (5)
  - Anastomotic ulcer [Recovered/Resolved]
  - Wrong technique in product usage process [Recovered/Resolved]
  - Haemoglobin abnormal [Recovered/Resolved]
  - Product use issue [Recovered/Resolved]
  - Intentional product use issue [Recovered/Resolved]

NARRATIVE: CASE EVENT DATE: 201806
